FAERS Safety Report 9520364 (Version 1)
Quarter: 2013Q3

REPORT INFORMATION
  Report Type: Spontaneous
  Country: BR (occurrence: BR)
  Receive Date: 20130912
  Receipt Date: 20130912
  Transmission Date: 20140515
  Serious: Yes (Other)
  Sender: FDA-Public Use
  Company Number: BR-PFIZER INC-2013259734

PATIENT
  Sex: Female

DRUGS (2)
  1. LYRICA [Suspect]
     Dosage: 150 MG, CYCLIC
  2. LYRICA [Suspect]
     Dosage: 150 MG (ONE CAPSULE), 2X/DAY
     Dates: start: 201211

REACTIONS (5)
  - Back disorder [Unknown]
  - Hypertension [Unknown]
  - Anxiety [Unknown]
  - Neuralgia [Unknown]
  - Neuropathy peripheral [Unknown]
